FAERS Safety Report 8535619-X (Version None)
Quarter: 2012Q3

REPORT INFORMATION
  Report Type: 
  Country: None (occurrence: None)
  Receive Date: 20120725
  Receipt Date: 20120716
  Transmission Date: 20120928
  Serious: Yes (Hospitalization)
  Sender: FDA-Public Use
  Company Number: US-BAYER-2012-072417

PATIENT
  Age: 46 Year
  Sex: Female
  Weight: 67.12 kg

DRUGS (16)
  1. VICODIN [Concomitant]
     Indication: PAIN
  2. ACIPHEX [Concomitant]
     Dosage: 20 MG, ONCE TO TWICE A DAY
  3. DIAZEPAM [Concomitant]
     Dosage: 5 MG, UNK
     Route: 048
  4. IBUPROFEN [Concomitant]
     Dosage: 800 MG, UNK
  5. XANAX [Concomitant]
     Dosage: 0.5 MG, TWO TO THREE TIMES A DAY
     Route: 048
  6. YASMIN [Suspect]
  7. AMBIEN CR [Concomitant]
     Dosage: 12.5 MG, HS
     Route: 048
  8. AXID [Concomitant]
     Dosage: UNK UNK, PRN
     Route: 048
  9. HYDROCODONE BITARTRATE AND ACETAMINOPHEN [Concomitant]
     Dosage: 7.5/500
  10. HYDROXYZINE HCL [Concomitant]
     Dosage: 25 MG, UNK
     Route: 048
  11. WELLBUTRIN SR [Concomitant]
     Dosage: 150 MG, BID
     Route: 048
  12. MORPHINE SULFATE [Concomitant]
     Indication: PAIN
  13. LIPITOR [Concomitant]
     Dosage: 10 MG, HS
  14. AZITHROMYCIN [Concomitant]
     Dosage: 250 MG, UNK
  15. NEXIUM [Concomitant]
     Dosage: 40 MG, UNK
     Route: 048
  16. PROTONIX [Concomitant]

REACTIONS (1)
  - PULMONARY EMBOLISM [None]
